FAERS Safety Report 25532631 (Version 2)
Quarter: 2025Q3

REPORT INFORMATION
  Report Type: Spontaneous
  Country: EU (occurrence: EU)
  Receive Date: 20250709
  Receipt Date: 20250730
  Transmission Date: 20251021
  Serious: Yes (Death, Life-Threatening, Hospitalization)
  Sender: TEVA
  Company Number: EU-TEVA-VS-3348672

PATIENT
  Sex: Male

DRUGS (3)
  1. DOXORUBICIN [Suspect]
     Active Substance: DOXORUBICIN
     Indication: Osteosarcoma
     Route: 064
  2. IFOSFAMIDE [Suspect]
     Active Substance: IFOSFAMIDE
     Indication: Osteosarcoma
     Route: 064
  3. CISPLATIN [Suspect]
     Active Substance: CISPLATIN
     Indication: Osteosarcoma
     Route: 064

REACTIONS (9)
  - Cardiac failure [Fatal]
  - Foetal growth restriction [Unknown]
  - Metabolic acidosis [Unknown]
  - Anaemia [Unknown]
  - Pleural effusion [Fatal]
  - Respiratory acidosis [Unknown]
  - Acute kidney injury [Unknown]
  - Foetal exposure during pregnancy [Unknown]
  - Premature baby [Unknown]
